FAERS Safety Report 8856647 (Version 1)
Quarter: 2012Q4

REPORT INFORMATION
  Report Type: 
  Country: US (occurrence: US)
  Receive Date: 20121023
  Receipt Date: 20121023
  Transmission Date: 20130627
  Serious: No
  Sender: FDA-Public Use
  Company Number: US-AMGEN-USASP2012056742

PATIENT
  Age: 72 Year
  Sex: Female

DRUGS (2)
  1. ENBREL [Suspect]
     Indication: PSORIASIS
     Dosage: UNK
     Route: 058
     Dates: start: 19990901
  2. ENBREL [Suspect]
     Indication: PSORIATIC ARTHROPATHY

REACTIONS (3)
  - Musculoskeletal stiffness [Not Recovered/Not Resolved]
  - Spinal pain [Not Recovered/Not Resolved]
  - Psoriasis [Not Recovered/Not Resolved]
